FAERS Safety Report 9891717 (Version 1)
Quarter: 2014Q1

REPORT INFORMATION
  Report Type: Spontaneous
  Country: FR (occurrence: FR)
  Receive Date: 20140212
  Receipt Date: 20140212
  Transmission Date: 20141002
  Serious: Yes (Other)
  Sender: FDA-Public Use
  Company Number: PHHY2014FR015847

PATIENT
  Sex: Female

DRUGS (13)
  1. TEGRETOL [Suspect]
     Dosage: 800 MG, QD
  2. ZONEGRAN [Suspect]
     Dosage: 400 MG, QD
  3. EPITOMAX [Suspect]
     Dosage: 100 MG, QD
  4. EPITOMAX [Suspect]
     Dosage: 100 MG, BID
  5. DIAZEPAM [Suspect]
     Dosage: 20 MG, QD
  6. DIAZEPAM [Suspect]
     Dosage: 50 MG, BID
  7. NOZINAN [Suspect]
     Dosage: UNK UKN, UNK
  8. NOZINAN [Suspect]
     Dosage: 200 MG, BID
  9. LAROXYL [Suspect]
     Dosage: 50 MG, DAILY
     Dates: start: 2013
  10. LAROXYL [Suspect]
     Dosage: (12.5 MG IN THE MORNING, 12.5 MG AT MIDDAY AND 25 MG IN THE EVENING)
  11. ATARAX [Suspect]
     Dosage: 50 MG, QD
     Dates: end: 2013
  12. NORFLEX [Suspect]
     Dosage: (200 TO 800 MG)
     Dates: end: 2013
  13. EUPANTOL [Suspect]
     Dosage: 40 MG, QD
     Dates: end: 2013

REACTIONS (3)
  - Caesarean section [Unknown]
  - Convulsion [Unknown]
  - Maternal exposure during pregnancy [Unknown]
